FAERS Safety Report 6762026-2 (Version None)
Quarter: 2010Q2

REPORT INFORMATION
  Report Type: 
  Country: None (occurrence: None)
  Receive Date: 20100609
  Receipt Date: 20100528
  Transmission Date: 20101027
  Serious: Yes (Hospitalization, Other)
  Sender: FDA-Public Use
  Company Number: ES-SANOFI-AVENTIS-2010SA022068

PATIENT
  Age: 62 Year
  Sex: Male

DRUGS (3)
  1. SEGURIL [Suspect]
     Indication: PORTAL HYPERTENSION
     Route: 065
  2. ALLOPURINOL [Suspect]
     Indication: HYPERURICAEMIA
     Route: 065
  3. METFORMIN HCL [Concomitant]

REACTIONS (2)
  - GRANULOMATOUS LIVER DISEASE [None]
  - HYPERCALCAEMIA [None]
